FAERS Safety Report 4991132-8 (Version None)
Quarter: 2006Q1

REPORT INFORMATION
  Report Type: 
  Country: None (occurrence: None)
  Receive Date: 20060314
  Receipt Date: 20060124
  Transmission Date: 20060701
  Serious: No
  Sender: FDA-Public Use
  Company Number: 2005-02486

PATIENT
  Age: 42 Year
  Sex: Female

DRUGS (4)
  1. VELCADE [Suspect]
     Indication: MULTIPLE MYELOMA
     Dosage: 1.30 MG/M2, 2/WEEK, INTRAVENOUS; 1.00 MG/M2, 2/WEEK, INTRAVENOUS
     Route: 042
     Dates: start: 20051110, end: 20051117
  2. VELCADE [Suspect]
     Indication: MULTIPLE MYELOMA
     Dosage: 1.30 MG/M2, 2/WEEK, INTRAVENOUS; 1.00 MG/M2, 2/WEEK, INTRAVENOUS
     Route: 042
     Dates: start: 20050101
  3. LASIX [Concomitant]
  4. DEXAMETHASONE TAB [Concomitant]

REACTIONS (3)
  - ASTHENIA [None]
  - BLOOD PRESSURE INCREASED [None]
  - MONONEUROPATHY MULTIPLEX [None]
